FAERS Safety Report 18213232 (Version 1)
Quarter: 2020Q3

REPORT INFORMATION
  Report Type: Report from Study
  Country: MX (occurrence: MX)
  Receive Date: 20200831
  Receipt Date: 20200831
  Transmission Date: 20201103
  Serious: Yes (Other)
  Sender: FDA-Public Use
  Company Number: MX-UCBSA-2020033301

PATIENT
  Sex: Female
  Weight: 68 kg

DRUGS (8)
  1. DIAZEPAM. [Concomitant]
     Active Substance: DIAZEPAM
     Indication: UNEVALUABLE EVENT
     Dosage: DIAZEPAM 10 MG 0.25 TABLET SPORADICALLY
     Route: 048
     Dates: end: 2020
  2. LACOSAMIDE. [Suspect]
     Active Substance: LACOSAMIDE
     Indication: EPILEPSY
     Dosage: 50 MILLIGRAM, 2X/DAY (BID)
     Route: 048
     Dates: start: 2019, end: 2019
  3. BRIVIACT [Suspect]
     Active Substance: BRIVARACETAM
     Dosage: 1 DOSAGE FORM, 2X/DAY (BID)
     Route: 048
     Dates: end: 2020
  4. LACOSAMIDE. [Suspect]
     Active Substance: LACOSAMIDE
     Dosage: 100 MILLIGRAM, 2X/DAY (BID)
     Route: 048
     Dates: start: 2019, end: 2019
  5. TEGRETOL [Concomitant]
     Active Substance: CARBAMAZEPINE
     Indication: SEIZURE
     Dosage: 400 MILLIGRAM, 2X/DAY (BID)
     Route: 048
  6. LACOSAMIDE. [Suspect]
     Active Substance: LACOSAMIDE
     Dosage: 100 MILLIGRAM, 2X/DAY (BID)
     Route: 048
     Dates: end: 2020
  7. LACOSAMIDE. [Suspect]
     Active Substance: LACOSAMIDE
     Dosage: DOSE CHANGE
     Route: 048
  8. BRIVIACT [Suspect]
     Active Substance: BRIVARACETAM
     Indication: EPILEPSY
     Dosage: INITIAL DOSE
     Route: 048
     Dates: start: 2019

REACTIONS (5)
  - Dysphonia [Recovered/Resolved]
  - Seizure [Recovered/Resolved]
  - Drug ineffective [Unknown]
  - Tremor [Recovered/Resolved]
  - Head titubation [Recovered/Resolved]

NARRATIVE: CASE EVENT DATE: 2019
